FAERS Safety Report 4561416-6 (Version None)
Quarter: 2005Q1

REPORT INFORMATION
  Report Type: 
  Country: None (occurrence: None)
  Receive Date: 20050121
  Receipt Date: 20050104
  Transmission Date: 20050727
  Serious: Yes (Other)
  Sender: FDA-Public Use
  Company Number: USA020414028

PATIENT
  Age: 66 Year
  Sex: Male
  Weight: 105 kg

DRUGS (5)
  1. HUMULIN 70/30 [Suspect]
     Indication: DIABETES MELLITUS
     Dosage: 20 U/3 DAY
     Dates: start: 19880101, end: 20040901
  2. HUMALOG [Suspect]
     Indication: DIABETES MELLITUS
     Dates: start: 20020901
  3. NOVOLIN 70/30 [Concomitant]
  4. GLUCOPHAGE [Concomitant]
  5. LANTUS [Concomitant]

REACTIONS (6)
  - BLOOD GLUCOSE DECREASED [None]
  - BLOOD GLUCOSE INCREASED [None]
  - MACULAR DEGENERATION [None]
  - OEDEMA PERIPHERAL [None]
  - PHARMACEUTICAL PRODUCT COMPLAINT [None]
  - SNAKE BITE [None]
